FAERS Safety Report 23654442 (Version 3)
Quarter: 2025Q1

REPORT INFORMATION
  Report Type: Report from Study
  Country: US (occurrence: US)
  Receive Date: 20240320
  Receipt Date: 20250304
  Transmission Date: 20250409
  Serious: Yes (Other)
  Sender: TAKEDA
  Company Number: US-TAKEDA-2023TUS031533

PATIENT
  Age: 66 Year
  Sex: Male

DRUGS (7)
  1. IXAZOMIB [Suspect]
     Active Substance: IXAZOMIB
     Indication: Plasma cell myeloma
  2. IXAZOMIB [Suspect]
     Active Substance: IXAZOMIB
     Indication: Bone cancer
  3. IXAZOMIB [Suspect]
     Active Substance: IXAZOMIB
     Indication: Plasmacytoma
  4. IXAZOMIB [Suspect]
     Active Substance: IXAZOMIB
  5. POMALYST [Suspect]
     Active Substance: POMALIDOMIDE
     Indication: Product used for unknown indication
  6. POMALYST [Suspect]
     Active Substance: POMALIDOMIDE
  7. REVLIMID [Concomitant]
     Active Substance: LENALIDOMIDE

REACTIONS (10)
  - Peripheral swelling [Unknown]
  - Paraesthesia [Unknown]
  - Burning sensation [Unknown]
  - Headache [Not Recovered/Not Resolved]
  - Alopecia [Not Recovered/Not Resolved]
  - Hypoaesthesia [Unknown]
  - Neck pain [Unknown]
  - Pain in extremity [Not Recovered/Not Resolved]
  - Product dose omission issue [Unknown]
  - Nausea [Recovered/Resolved]

NARRATIVE: CASE EVENT DATE: 20210101
